FAERS Safety Report 7174741-X (Version None)
Quarter: 2010Q4

REPORT INFORMATION
  Report Type: 
  Country: None (occurrence: None)
  Receive Date: 20101219
  Receipt Date: 20100407
  Transmission Date: 20110411
  Serious: No
  Sender: FDA-Public Use
  Company Number: US-AMGEN-KDL404135

PATIENT

DRUGS (8)
  1. ENBREL [Suspect]
     Indication: PRODUCT USED FOR UNKNOWN INDICATION
     Dosage: 50 MG, QWK
     Route: 058
  2. SIMVASTATIN [Concomitant]
     Dosage: 10 MG, UNK
     Route: 048
  3. SUCRALFATE [Concomitant]
     Dosage: 1 G, UNK
     Route: 048
  4. TRAZODONE HCL [Concomitant]
     Dosage: 100 MG, UNK
     Route: 048
  5. LORAZEPAM [Concomitant]
     Dosage: .5 MG, UNK
     Route: 048
  6. OMEPRAZOLE [Concomitant]
     Dosage: 40 MG, UNK
     Route: 048
  7. CLOPIDOGREL BISULFATE [Concomitant]
     Dosage: 75 MG, UNK
     Route: 048
  8. MULTI-VITAMINS [Concomitant]
     Dosage: UNK UNK, UNK
     Route: 048

REACTIONS (2)
  - LABORATORY TEST ABNORMAL [None]
  - RENAL DISORDER [None]
